FAERS Safety Report 5258478-X (Version None)
Quarter: 2007Q1

REPORT INFORMATION
  Report Type: 
  Country: None (occurrence: None)
  Receive Date: 20070308
  Receipt Date: 20070226
  Transmission Date: 20070707
  Serious: Yes (Hospitalization)
  Sender: FDA-Public Use
  Company Number: PHNU2007DE01004

PATIENT
  Age: 74 Year
  Sex: Male

DRUGS (1)
  1. ACLASTA [Suspect]
     Indication: OSTEOPOROSIS
     Dosage: 5 MG, ONCE/SINGLE
     Route: 042
     Dates: start: 20070108, end: 20070108

REACTIONS (4)
  - ARTHRALGIA [None]
  - BACK PAIN [None]
  - NAUSEA [None]
  - VERTEBROPLASTY [None]
